FAERS Safety Report 7680482-2 (Version None)
Quarter: 2011Q3

REPORT INFORMATION
  Report Type: 
  Country: None (occurrence: None)
  Receive Date: 20110812
  Receipt Date: 20110801
  Transmission Date: 20111222
  Serious: Yes (Hospitalization)
  Sender: FDA-Public Use
  Company Number: US-JNJFOC-20100608024

PATIENT
  Sex: Female
  Weight: 54 kg

DRUGS (2)
  1. INFLIXIMAB, RECOMBINANT [Suspect]
     Route: 042
     Dates: start: 20040128
  2. INFLIXIMAB, RECOMBINANT [Suspect]
     Indication: COLITIS
     Dosage: TOAL 10 DOSES
     Route: 042
     Dates: start: 20050429

REACTIONS (2)
  - ABDOMINAL ADHESIONS [None]
  - SMALL INTESTINAL OBSTRUCTION [None]
